FAERS Safety Report 25004800 (Version 1)
Quarter: 2025Q1

REPORT INFORMATION
  Report Type: Spontaneous
  Country: US (occurrence: None)
  Receive Date: 20250223
  Receipt Date: 20250223
  Transmission Date: 20250409
  Serious: No
  Sender: FDA-CTU
  Company Number: None

PATIENT
  Age: 64 Year
  Sex: Female
  Weight: 99.9 kg

DRUGS (4)
  1. REPATHA [Suspect]
     Active Substance: EVOLOCUMAB
     Indication: Blood cholesterol increased
     Dosage: OTHER FREQUENCY : EVERY OTHER WEEK;?OTHER ROUTE : REPATHA INJECTION AND TINIDAZOLE ORAL;?
     Route: 050
  2. REPATHA [Suspect]
     Active Substance: EVOLOCUMAB
     Indication: Bacterial vaginosis
  3. TINIDAZOLE [Suspect]
     Active Substance: TINIDAZOLE
  4. REPATHA [Concomitant]
     Active Substance: EVOLOCUMAB

REACTIONS (5)
  - Eye disorder [None]
  - Visual field defect [None]
  - Visual impairment [None]
  - Ophthalmic migraine [None]
  - Anxiety [None]

NARRATIVE: CASE EVENT DATE: 20250220
